FAERS Safety Report 24753225 (Version 1)
Quarter: 2024Q4

REPORT INFORMATION
  Report Type: Spontaneous
  Country: US (occurrence: US)
  Receive Date: 20241219
  Receipt Date: 20241219
  Transmission Date: 20250114
  Serious: No
  Sender: PACIRA
  Company Number: US-ORG100016242-2024000064

PATIENT
  Age: 41 Year

DRUGS (6)
  1. EXPAREL [Suspect]
     Active Substance: BUPIVACAINE
     Indication: Trigeminal neuralgia
     Dosage: DOSAGE NOT PROVIDED, POST-WISDOM TOOTH EXTRACTION
     Route: 050
  2. EXPAREL [Suspect]
     Active Substance: BUPIVACAINE
     Indication: Trigeminal neuralgia
     Dosage: DOSAGE NOT PROVIDED VIA NERVE BLOCK
     Route: 065
  3. EXPAREL [Suspect]
     Active Substance: BUPIVACAINE
     Indication: Trigeminal neuralgia
     Dosage: DOSAGE NOT PROVIDED VIA NERVE BLOCK AND LOCAL INFILTRATES
     Route: 050
  4. BACLOFEN [Concomitant]
     Active Substance: BACLOFEN
     Indication: Product used for unknown indication
     Dosage: DOSAGE NOT PROVIDED
     Route: 048
  5. CARBAMAZEPINE [Concomitant]
     Active Substance: CARBAMAZEPINE
     Indication: Product used for unknown indication
     Dosage: DOSAGE NOT PROVIDED
     Route: 048
  6. GABAPENTIN [Concomitant]
     Active Substance: GABAPENTIN
     Indication: Product used for unknown indication
     Dosage: DOSAGE NOT PROVIDED
     Route: 048

REACTIONS (2)
  - Off label use [Recovered/Resolved]
  - No adverse event [Unknown]
